FAERS Safety Report 8203806-6 (Version None)
Quarter: 2012Q1

REPORT INFORMATION
  Report Type: 
  Country: None (occurrence: None)
  Receive Date: 20120313
  Receipt Date: 20120305
  Transmission Date: 20120608
  Serious: Yes (Other)
  Sender: FDA-Public Use
  Company Number: BR-SANOFI-AVENTIS-2012SA015316

PATIENT
  Age: 13 Year
  Sex: Male
  Weight: 45 kg

DRUGS (2)
  1. NOVORAPID [Concomitant]
     Dosage: ACCORDING TO GLYCEMIA
     Route: 058
     Dates: start: 20090101
  2. LANTUS [Suspect]
     Dosage: DAILY IN THE MORNING SINCE 2.5 YEARS
     Route: 058
     Dates: start: 20090101

REACTIONS (5)
  - WOUND INFECTION [None]
  - POLLAKIURIA [None]
  - HYPERGLYCAEMIA [None]
  - THIRST [None]
  - JOINT INJURY [None]
